FAERS Safety Report 9019066 (Version 1)
Quarter: 2013Q1

REPORT INFORMATION
  Report Type: Spontaneous
  Country: IT (occurrence: FR)
  Receive Date: 20130118
  Receipt Date: 20130118
  Transmission Date: 20140127
  Serious: Yes (Other)
  Sender: FDA-Public Use
  Company Number: FR-FRI-1000041597

PATIENT
  Age: 58 None
  Sex: Male

DRUGS (4)
  1. NEBIVOLOL [Suspect]
     Dosage: 10 MG
     Route: 048
  2. TUSSIDANE [Suspect]
     Indication: BRONCHITIS
     Dosage: 30 MG
     Route: 048
     Dates: start: 20121112, end: 20121114
  3. TAHOR [Concomitant]
  4. ATACAND [Concomitant]

REACTIONS (2)
  - Bradycardia [Recovered/Resolved]
  - Drug interaction [Recovered/Resolved]
